FAERS Safety Report 11918410 (Version 2)
Quarter: 2016Q1

REPORT INFORMATION
  Report Type: Report from Study
  Country: US (occurrence: US)
  Receive Date: 20160115
  Receipt Date: 20160201
  Transmission Date: 20160526
  Serious: No
  Sender: FDA-Public Use
  Company Number: US-AMGEN-USASL2016002330

PATIENT
  Age: 57 Year
  Sex: Female

DRUGS (1)
  1. ENBREL [Suspect]
     Active Substance: ETANERCEPT
     Indication: RHEUMATOID ARTHRITIS
     Dosage: 50 MG, QWK
     Route: 065
     Dates: start: 20160101

REACTIONS (16)
  - Pollakiuria [Unknown]
  - Rhinorrhoea [Unknown]
  - Injection site bruising [Unknown]
  - Abdominal pain upper [Unknown]
  - Vision blurred [Unknown]
  - Paraesthesia oral [Unknown]
  - Dyspepsia [Unknown]
  - Throat irritation [Unknown]
  - Abdominal distension [Unknown]
  - Injection site pruritus [Unknown]
  - Nausea [Unknown]
  - Paraesthesia [Unknown]
  - Headache [Unknown]
  - Injection site erythema [Unknown]
  - Fatigue [Unknown]
  - Rash [Unknown]
